FAERS Safety Report 17203297 (Version 1)
Quarter: 2019Q4

REPORT INFORMATION
  Report Type: Spontaneous
  Country: US (occurrence: US)
  Receive Date: 20191226
  Receipt Date: 20191226
  Transmission Date: 20200122
  Serious: No
  Sender: FDA-Public Use
  Company Number: US-UPSHER-SMITH LABORATORIES, LLC-2019USL00379

PATIENT
  Age: 87 Year
  Sex: Male
  Weight: 81.63 kg

DRUGS (6)
  1. LASIX [Concomitant]
     Active Substance: FUROSEMIDE
     Dosage: UNK, EVERY OTHER DAY
     Dates: start: 201909
  2. POTASSIUM CHLORIDE MICRO-DISPERSIBLE [Suspect]
     Active Substance: POTASSIUM CHLORIDE
     Indication: BLOOD POTASSIUM DECREASED
     Dosage: 10 MEQ, EVERY OTHER DAY ON THE DAYS HE TOOK LASIX
     Route: 048
     Dates: start: 20190519, end: 20190520
  3. UNSPECIFIED MEDICATIONS FOR DEMENTIA [Concomitant]
  4. BABY ASA [Concomitant]
     Active Substance: ASPIRIN
  5. UNSPECIFED MEDICATIONS FOR PARKINSON^S DISEASE [Concomitant]
  6. UNSPECIFIED MEDICATIONS FOR BLOOD PRESSURE [Concomitant]

REACTIONS (1)
  - Choking [Recovered/Resolved]

NARRATIVE: CASE EVENT DATE: 20190519
